FAERS Safety Report 12867279 (Version 1)
Quarter: 2016Q4

REPORT INFORMATION
  Report Type: Spontaneous
  Country: US (occurrence: US)
  Receive Date: 20161020
  Receipt Date: 20161020
  Transmission Date: 20170207
  Serious: Yes (Death, Other)
  Sender: FDA-Public Use
  Company Number: US-TEVA-705650USA

PATIENT

DRUGS (1)
  1. MEFLOQUINE [Suspect]
     Active Substance: MEFLOQUINE
     Dosage: 250MG/1250 MG
     Dates: start: 20060801, end: 20161013

REACTIONS (2)
  - Death [Fatal]
  - Vestibular disorder [Unknown]
